FAERS Safety Report 5021989-6 (Version None)
Quarter: 2006Q2

REPORT INFORMATION
  Report Type: 
  Country: None (occurrence: None)
  Receive Date: 20060501
  Receipt Date: 20060216
  Transmission Date: 20061013
  Serious: Yes (Other)
  Sender: FDA-Public Use
  Company Number: 200610699US

PATIENT
  Age: 42 Year
  Sex: Female

DRUGS (1)
  1. KETEK [Suspect]
     Indication: ACUTE SINUSITIS
     Dosage: 800 MG QD PO
     Route: 048
     Dates: start: 20051110, end: 20051118

REACTIONS (9)
  - ABDOMINAL PAIN UPPER [None]
  - ALANINE AMINOTRANSFERASE INCREASED [None]
  - ASPARTATE AMINOTRANSFERASE INCREASED [None]
  - BLOOD BILIRUBIN INCREASED [None]
  - CHROMATURIA [None]
  - EOSINOPHIL COUNT INCREASED [None]
  - FATIGUE [None]
  - NAUSEA [None]
  - TRANSAMINASES INCREASED [None]
